FAERS Safety Report 5138989-8 (Version None)
Quarter: 2006Q4

REPORT INFORMATION
  Report Type: 
  Country: None (occurrence: None)
  Receive Date: 20061030
  Receipt Date: 20060531
  Transmission Date: 20070319
  Serious: No
  Sender: FDA-Public Use
  Company Number: US-GLAXOSMITHKLINE-A0607471A

PATIENT
  Age: 69 Year
  Sex: Male
  Weight: 65 kg

DRUGS (2)
  1. ADVAIR HFA [Suspect]
     Indication: CHRONIC OBSTRUCTIVE PULMONARY DISEASE
     Route: 055
     Dates: start: 20060501
  2. SPIRIVA [Concomitant]

REACTIONS (1)
  - RASH [None]
